FAERS Safety Report 14767307 (Version 4)
Quarter: 2018Q2

REPORT INFORMATION
  Report Type: Report from Study
  Country: None (occurrence: TW)
  Receive Date: 20180417
  Receipt Date: 20180510
  Transmission Date: 20180711
  Serious: Yes (Hospitalization, Other)
  Sender: FDA-Public Use
  Company Number: TW-ABBVIE-18K-153-2318854-00

PATIENT
  Age: 50 Year
  Sex: Male
  Weight: 60 kg

DRUGS (4)
  1. SULFASALAZINE. [Concomitant]
     Active Substance: SULFASALAZINE
     Indication: ANKYLOSING SPONDYLITIS
     Route: 048
     Dates: start: 20170817
  2. HUMIRA [Suspect]
     Active Substance: ADALIMUMAB
     Indication: ANKYLOSING SPONDYLITIS
     Route: 058
     Dates: start: 20171221, end: 20180313
  3. HUMIRA [Suspect]
     Active Substance: ADALIMUMAB
     Indication: ANKYLOSING SPONDYLITIS
     Route: 058
     Dates: start: 20091027, end: 20171123
  4. TELBIVUDINE [Concomitant]
     Active Substance: TELBIVUDINE
     Indication: VIRAL HEPATITIS CARRIER
     Route: 048
     Dates: start: 20140821

REACTIONS (5)
  - Renal cyst [Unknown]
  - Hepatocellular carcinoma [Recovering/Resolving]
  - Nephrolithiasis [Unknown]
  - Hypertension [Unknown]
  - Cholelithiasis [Unknown]

NARRATIVE: CASE EVENT DATE: 20151015
